FAERS Safety Report 4625498-5 (Version None)
Quarter: 2005Q2

REPORT INFORMATION
  Report Type: 
  Country: None (occurrence: None)
  Receive Date: 20050401
  Receipt Date: 20050325
  Transmission Date: 20051028
  Serious: Yes (Hospitalization, Disabling)
  Sender: FDA-Public Use
  Company Number: GB-ABBOTT-05P-167-0295302-00

PATIENT
  Age: 66 Year
  Sex: Female

DRUGS (5)
  1. VALPROATE SODIUM [Suspect]
     Indication: AFFECTIVE DISORDER
     Route: 048
     Dates: start: 20050216, end: 20050302
  2. HALOPERIDOL [Concomitant]
     Indication: PSYCHOTIC DISORDER
     Dosage: 1-3 MG
     Dates: start: 20041224
  3. PROCYCLIDINE HYDROCHLORIDE 2MG TAB [Concomitant]
     Indication: MUSCLE RIGIDITY
     Dates: start: 20050222
  4. ACETYLSALICYLIC ACID SRT [Concomitant]
     Indication: ANTIPLATELET THERAPY
     Dates: start: 20041203
  5. VENLAFAXINE [Concomitant]
     Indication: DEPRESSION
     Dates: start: 20041214

REACTIONS (3)
  - INSOMNIA [None]
  - MENTAL DISORDER [None]
  - MUSCLE TWITCHING [None]
